FAERS Safety Report 13246812 (Version 2)
Quarter: 2017Q1

REPORT INFORMATION
  Report Type: Spontaneous
  Country: GB (occurrence: GB)
  Receive Date: 20170217
  Receipt Date: 20170302
  Transmission Date: 20170428
  Serious: Yes (Death, Other)
  Sender: FDA-Public Use
  Company Number: GB-TEVA-739972ACC

PATIENT
  Age: 30 Year
  Sex: Male

DRUGS (2)
  1. DIAZEPAM. [Suspect]
     Active Substance: DIAZEPAM
  2. LYRICA [Suspect]
     Active Substance: PREGABALIN

REACTIONS (2)
  - Death [Fatal]
  - Overdose [Unknown]
